FAERS Safety Report 5562979-4 (Version None)
Quarter: 2007Q4

REPORT INFORMATION
  Report Type: 
  Country: None (occurrence: None)
  Receive Date: 20071217
  Receipt Date: 20071204
  Transmission Date: 20080405
  Serious: Yes (Other)
  Sender: FDA-Public Use
  Company Number: JP-BAYER-200716031GDS

PATIENT
  Age: 84 Year
  Sex: Female

DRUGS (2)
  1. BUFFERIN [Suspect]
     Indication: MYOCARDIAL ISCHAEMIA
     Route: 065
  2. ETODOLAC [Concomitant]
     Indication: SPINAL COLUMN STENOSIS

REACTIONS (2)
  - DIVERTICULUM INTESTINAL HAEMORRHAGIC [None]
  - MELAENA [None]
